FAERS Safety Report 4860503-2 (Version None)
Quarter: 2005Q4

REPORT INFORMATION
  Report Type: 
  Country: None (occurrence: None)
  Receive Date: 20051219
  Receipt Date: 20051207
  Transmission Date: 20060501
  Serious: Yes (Other)
  Sender: FDA-Public Use
  Company Number: PL-NOVOPROD-249190

PATIENT
  Age: 47 Year
  Sex: Female
  Weight: 104 kg

DRUGS (1)
  1. NOVOLOG MIX 70/30 [Suspect]
     Indication: ILL-DEFINED DISORDER
     Dosage: 28-0-22

REACTIONS (4)
  - HEADACHE [None]
  - NAUSEA [None]
  - VERTIGO [None]
  - VOMITING [None]
